FAERS Safety Report 4425225-0 (Version None)
Quarter: 2004Q3

REPORT INFORMATION
  Report Type: 
  Country: None (occurrence: None)
  Receive Date: 20040813
  Receipt Date: 20040730
  Transmission Date: 20050211
  Serious: Yes (Other)
  Sender: FDA-Public Use
  Company Number: US-JNJFOC-20040605470

PATIENT
  Sex: Female
  Weight: 58.97 kg

DRUGS (23)
  1. REMICADE [Suspect]
     Dates: start: 20020314
  2. REMICADE [Suspect]
     Dates: start: 20020314
  3. REMICADE [Suspect]
     Dates: start: 20020314
  4. REMICADE [Suspect]
     Dates: start: 20020314
  5. REMICADE [Suspect]
     Dates: start: 20020314
  6. REMICADE [Suspect]
     Dates: start: 20020314
  7. REMICADE [Suspect]
     Dates: start: 20020314
  8. REMICADE [Suspect]
     Dates: start: 20020314
  9. REMICADE [Suspect]
     Dates: start: 20020314
  10. REMICADE [Suspect]
     Dates: start: 20020314
  11. REMICADE [Suspect]
     Dates: start: 20020314
  12. REMICADE [Suspect]
     Dates: start: 20020314
  13. REMICADE [Suspect]
     Dates: start: 20020314
  14. REMICADE [Suspect]
     Dates: start: 20020314
  15. REMICADE [Suspect]
     Dates: start: 20020314
  16. REMICADE [Suspect]
     Dates: start: 20020314
  17. REMICADE [Suspect]
     Dates: start: 20020314
  18. REMICADE [Suspect]
     Dates: start: 20020314
  19. REMICADE [Suspect]
     Dates: start: 20020314
  20. REMICADE [Suspect]
     Dates: start: 20020314
  21. REMICADE [Suspect]
     Dates: start: 20020314
  22. REMICADE [Suspect]
     Dates: start: 20020314
  23. METHOTREXATE [Concomitant]

REACTIONS (14)
  - ATYPICAL MYCOBACTERIAL INFECTION [None]
  - BACK PAIN [None]
  - DEPRESSION [None]
  - FALL [None]
  - HEADACHE [None]
  - MUSCULOSKELETAL CHEST PAIN [None]
  - NEUROENDOCRINE CARCINOMA OF THE SKIN [None]
  - NIGHT SWEATS [None]
  - OSTEOPOROSIS [None]
  - OSTEOPOROTIC FRACTURE [None]
  - PURPURA [None]
  - PYREXIA [None]
  - RIB FRACTURE [None]
  - WEIGHT DECREASED [None]
